FAERS Safety Report 6405159-2 (Version None)
Quarter: 2009Q4

REPORT INFORMATION
  Report Type: 
  Country: None (occurrence: None)
  Receive Date: 20091019
  Receipt Date: 20090916
  Transmission Date: 20100525
  Serious: No
  Sender: FDA-Public Use
  Company Number: US-BAYER-200914618BCC

PATIENT
  Age: 89 Year
  Sex: Female
  Weight: 59 kg

DRUGS (3)
  1. ALEVE (CAPLET) [Suspect]
     Indication: EXOSTOSIS
     Dosage: TOTAL DAILY DOSE: 880 MG  UNIT DOSE: 220 MG
     Route: 048
     Dates: start: 20090819
  2. LIPITOR [Concomitant]
     Route: 065
  3. ASPIRIN [Concomitant]
     Route: 065

REACTIONS (1)
  - OCULAR DISCOMFORT [None]
